FAERS Safety Report 23551161 (Version 2)
Quarter: 2024Q1

REPORT INFORMATION
  Report Type: Other
  Country: JP (occurrence: JP)
  Receive Date: 20240222
  Receipt Date: 20240229
  Transmission Date: 20240409
  Serious: Yes (Hospitalization)
  Sender: FDA-Public Use
  Company Number: JP-CHUGAI-2024005210AA

PATIENT
  Age: 7 Decade
  Sex: Male
  Weight: 74.6 kg

DRUGS (4)
  1. TECENTRIQ [Suspect]
     Active Substance: ATEZOLIZUMAB
     Indication: Hepatocellular carcinoma
     Dosage: 1200 MILLIGRAM
     Route: 065
  2. AVASTIN [Suspect]
     Active Substance: BEVACIZUMAB
     Indication: Hepatocellular carcinoma
     Dosage: 800 MILLIGRAM
     Route: 065
  3. LENVATINIB [Concomitant]
     Active Substance: LENVATINIB
  4. HYDROCORTISONE [Concomitant]
     Active Substance: HYDROCORTISONE

REACTIONS (2)
  - Secondary adrenocortical insufficiency [Recovering/Resolving]
  - Disease progression [Unknown]
